FAERS Safety Report 6882037-6 (Version None)
Quarter: 2010Q3

REPORT INFORMATION
  Report Type: 
  Country: None (occurrence: None)
  Receive Date: 20100729
  Receipt Date: 20100726
  Transmission Date: 20110219
  Serious: Yes (Hospitalization)
  Sender: FDA-Public Use
  Company Number: SE-WYE-G06154810

PATIENT
  Sex: Female

DRUGS (15)
  1. TORISEL [Suspect]
     Indication: METASTATIC RENAL CELL CARCINOMA
     Dosage: DOSE UNKNOWN TOTALLY TEN DOSIS
     Dates: start: 20100219, end: 20100426
  2. ALVEDON [Concomitant]
  3. CIPROFLOXACIN HCL [Concomitant]
  4. DIFLUCAN [Concomitant]
  5. LACTULOSE [Concomitant]
  6. PREDNISOLONE [Concomitant]
  7. IMOVANE [Concomitant]
  8. ENALAPRIL MALEATE [Concomitant]
  9. SELOKEN ZOC [Concomitant]
  10. IMDUR [Concomitant]
  11. SIMVASTATIN [Concomitant]
  12. LEVOTHYROXINE SODIUM [Concomitant]
  13. TROMBYL [Concomitant]
  14. NITROLINGUAL [Concomitant]
  15. DEXOFEN [Concomitant]

REACTIONS (3)
  - ALVEOLITIS [None]
  - OXYGEN SATURATION DECREASED [None]
  - STAPHYLOCOCCAL SEPSIS [None]
